FAERS Safety Report 11182665 (Version 2)
Quarter: 2016Q2

REPORT INFORMATION
  Report Type: Spontaneous
  Country: US (occurrence: US)
  Receive Date: 20150611
  Receipt Date: 20160414
  Transmission Date: 20160815
  Serious: Yes (Other)
  Sender: FDA-Public Use
  Company Number: US-ASTELLAS-2015US016044

PATIENT
  Sex: Male

DRUGS (3)
  1. XTANDI [Suspect]
     Active Substance: ENZALUTAMIDE
     Route: 048
  2. XTANDI [Suspect]
     Active Substance: ENZALUTAMIDE
     Route: 048
  3. XTANDI [Suspect]
     Active Substance: ENZALUTAMIDE
     Indication: PROSTATE CANCER
     Route: 048
     Dates: start: 20150210

REACTIONS (11)
  - Peripheral coldness [Unknown]
  - Hypotonia [Unknown]
  - Decreased appetite [Unknown]
  - Muscular weakness [Unknown]
  - Somnolence [Unknown]
  - Dizziness [Unknown]
  - Malignant neoplasm progression [Unknown]
  - Fatigue [Unknown]
  - Nausea [Unknown]
  - Peripheral swelling [Unknown]
  - Vertigo [Unknown]
